FAERS Safety Report 5165592-6 (Version None)
Quarter: 2006Q4

REPORT INFORMATION
  Report Type: 
  Country: None (occurrence: None)
  Receive Date: 20061206
  Receipt Date: 20061129
  Transmission Date: 20070319
  Serious: Yes (Other)
  Sender: FDA-Public Use
  Company Number: GB-GLAXOSMITHKLINE-B0449233A

PATIENT
  Age: 46 Year
  Sex: Female
  Weight: 93 kg

DRUGS (6)
  1. ROSIGLITAZONE [Suspect]
     Dosage: 4MG VARIABLE DOSE
     Dates: start: 20040914
  2. AVANDAMET [Suspect]
     Indication: DIABETES MELLITUS NON-INSULIN-DEPENDENT
     Route: 048
     Dates: start: 20050712
  3. ATORVASTATIN CALCIUM [Concomitant]
     Indication: BLOOD CHOLESTEROL INCREASED
     Dosage: 40MG PER DAY
     Dates: start: 20040929
  4. GLICLAZIDE [Concomitant]
     Dosage: 40MG PER DAY
  5. MODURETIC 5-50 [Concomitant]
  6. WARFARIN SODIUM [Concomitant]
     Indication: ANTICOAGULANT THERAPY
     Dosage: 6MG AS REQUIRED

REACTIONS (3)
  - IRITIS [None]
  - MACULAR OEDEMA [None]
  - UVEITIS [None]
